FAERS Safety Report 20791790 (Version 1)
Quarter: 2022Q2

REPORT INFORMATION
  Report Type: Spontaneous
  Country: US (occurrence: US)
  Receive Date: 20220505
  Receipt Date: 20220505
  Transmission Date: 20220720
  Serious: No
  Sender: FDA-Public Use
  Company Number: US-PFIZER INC-202101334992

PATIENT
  Age: 57 Year
  Sex: Female

DRUGS (3)
  1. XELJANZ XR [Suspect]
     Active Substance: TOFACITINIB CITRATE
     Dosage: 11 MG, DAILY (11 MG/ TAKE 1 TABLET BY MOUTH DAILY)
     Route: 048
  2. LEVOTHYROXINE SODIUM [Concomitant]
     Active Substance: LEVOTHYROXINE SODIUM
     Dosage: UNK
  3. VIT D [VITAMIN D NOS] [Concomitant]
     Dosage: UNK

REACTIONS (12)
  - Drug ineffective [Unknown]
  - Gait disturbance [Unknown]
  - Insomnia [Unknown]
  - Pain [Unknown]
  - Psoriasis [Unknown]
  - Abdominal pain upper [Unknown]
  - Seborrhoea [Unknown]
  - Alopecia [Unknown]
  - Acne [Unknown]
  - Psoriasis [Unknown]
  - Peripheral swelling [Unknown]
  - Back pain [Unknown]
